FAERS Safety Report 11082466 (Version 2)
Quarter: 2016Q2

REPORT INFORMATION
  Report Type: Spontaneous
  Country: US (occurrence: US)
  Receive Date: 20150501
  Receipt Date: 20160415
  Transmission Date: 20160815
  Serious: Yes (Hospitalization, Other)
  Sender: FDA-Public Use
  Company Number: US-DSJP-DSU-2015-100777

PATIENT

DRUGS (4)
  1. BENICAR HCT [Suspect]
     Active Substance: HYDROCHLOROTHIAZIDE\OLMESARTAN MEDOXOMIL
     Indication: HYPERTENSION
     Dosage: UNK
     Dates: start: 20080125
  2. ASPIRIN                            /00002701/ [Concomitant]
     Active Substance: ASPIRIN
     Indication: PRODUCT USED FOR UNKNOWN INDICATION
     Dosage: UNK
  3. BENICAR HCT [Suspect]
     Active Substance: HYDROCHLOROTHIAZIDE\OLMESARTAN MEDOXOMIL
     Indication: OEDEMA
     Dosage: 20/12.5 MG, QD
     Route: 048
     Dates: start: 2007, end: 20130106
  4. BENICAR [Suspect]
     Active Substance: OLMESARTAN MEDOXOMIL
     Indication: HYPERTENSION
     Dosage: 20 MG, QD
     Route: 048
     Dates: start: 2006, end: 2007

REACTIONS (22)
  - Acute kidney injury [Recovered/Resolved]
  - Irritable bowel syndrome [Unknown]
  - Joint stiffness [Recovered/Resolved]
  - Arthralgia [Recovered/Resolved]
  - Hiatus hernia [Unknown]
  - Gastrointestinal haemorrhage [Unknown]
  - Oedema peripheral [Recovered/Resolved]
  - Pyloric stenosis [Recovered/Resolved]
  - Emotional distress [Unknown]
  - Weight increased [Recovered/Resolved]
  - Rectal polyp [Unknown]
  - Muscle atrophy [Recovered/Resolved]
  - Malabsorption [Recovered/Resolved]
  - Pollakiuria [Not Recovered/Not Resolved]
  - Haemorrhoids [Unknown]
  - Erosive duodenitis [Unknown]
  - Alopecia [Recovered/Resolved]
  - Large intestine polyp [Recovered/Resolved]
  - Constipation [Recovered/Resolved]
  - Hypertension [Unknown]
  - Gastroenteritis viral [Unknown]
  - Muscle spasms [Recovered/Resolved]

NARRATIVE: CASE EVENT DATE: 2007
